FAERS Safety Report 10570066 (Version 1)
Quarter: 2014Q4

REPORT INFORMATION
  Report Type: Spontaneous
  Country: US (occurrence: None)
  Receive Date: 20141105
  Receipt Date: 20141105
  Transmission Date: 20150529
  Serious: Yes (Hospitalization)
  Sender: FDA-Public Use
  Company Number: 140427

PATIENT
  Age: 74 Year
  Sex: Female

DRUGS (1)
  1. GOLYTELY [Suspect]
     Active Substance: POLYETHYLENE GLYCOL 3350\POTASSIUM CHLORIDE\SODIUM BICARBONATE\SODIUM CHLORIDE\SODIUM SULFATE ANHYDROUS
     Indication: COLONOSCOPY
     Dosage: 1X PO
     Route: 048

REACTIONS (6)
  - Confusional state [None]
  - Clonic convulsion [None]
  - Nausea [None]
  - Vomiting [None]
  - Hyponatraemia [None]
  - Partial seizures [None]

NARRATIVE: CASE EVENT DATE: 20131018
